FAERS Safety Report 6377404-3 (Version None)
Quarter: 2009Q3

REPORT INFORMATION
  Report Type: 
  Country: None (occurrence: None)
  Receive Date: 20090923
  Receipt Date: 20090923
  Transmission Date: 20100115
  Serious: Yes (Life-Threatening)
  Sender: FDA-Public Use
  Company Number: None

PATIENT
  Sex: Male
  Weight: 93.4 kg

DRUGS (15)
  1. WARFARIN [Suspect]
     Indication: ATRIAL FIBRILLATION
     Dosage: 5 MG PO T, TH, S, SUN
     Dates: start: 20090804, end: 20090821
  2. ALLOPURINOL [Concomitant]
  3. AMIODARONE HCL [Concomitant]
  4. ASPIRIN [Concomitant]
  5. COREG [Concomitant]
  6. COLCHICINE [Concomitant]
  7. FISH OIL [Concomitant]
  8. FOLIC ACID [Concomitant]
  9. HUMALOG [Concomitant]
  10. JANUVIA [Concomitant]
  11. LANTUS [Concomitant]
  12. LISINOPRIL [Concomitant]
  13. MV [Concomitant]
  14. NORVASC [Concomitant]
  15. ZETIA [Concomitant]

REACTIONS (6)
  - ALANINE AMINOTRANSFERASE INCREASED [None]
  - ASPARTATE AMINOTRANSFERASE INCREASED [None]
  - GASTROINTESTINAL HAEMORRHAGE [None]
  - HAEMATOCRIT DECREASED [None]
  - HAEMOGLOBIN DECREASED [None]
  - INTERNATIONAL NORMALISED RATIO INCREASED [None]
